FAERS Safety Report 7096738-0 (Version None)
Quarter: 2010Q4

REPORT INFORMATION
  Report Type: 
  Country: None (occurrence: None)
  Receive Date: 20101111
  Receipt Date: 20091112
  Transmission Date: 20110411
  Serious: No
  Sender: FDA-Public Use
  Company Number: US-KINGPHARMUSA00001-K200901420

PATIENT
  Sex: Male
  Weight: 98.866 kg

DRUGS (4)
  1. AVINZA [Suspect]
     Indication: ARTHRALGIA
     Dosage: 90 MG, QD
     Route: 048
     Dates: start: 20020101
  2. ZYRTEC [Concomitant]
     Dosage: UNK
  3. PERCOCET [Concomitant]
     Indication: BREAKTHROUGH PAIN
     Dosage: UNK
  4. ANTIDEPRESSANTS [Concomitant]
     Indication: DEPRESSION
     Dosage: UNK

REACTIONS (1)
  - DRUG DIVERSION [None]
